FAERS Safety Report 25037655 (Version 1)
Quarter: 2025Q1

REPORT INFORMATION
  Report Type: Spontaneous
  Country: US (occurrence: None)
  Receive Date: 20250304
  Receipt Date: 20250304
  Transmission Date: 20250408
  Serious: Yes (Other)
  Sender: FDA-CTU
  Company Number: None

PATIENT
  Age: 77 Year
  Sex: Female
  Weight: 54 kg

DRUGS (9)
  1. REPATHA [Suspect]
     Active Substance: EVOLOCUMAB
     Indication: Blood cholesterol increased
     Route: 058
     Dates: start: 20250108, end: 20250205
  2. NADOLOL [Concomitant]
     Active Substance: NADOLOL
  3. IRBESARTAN [Concomitant]
     Active Substance: IRBESARTAN
  4. FAMOTIDINE [Concomitant]
     Active Substance: FAMOTIDINE
  5. CLONIDINE [Concomitant]
     Active Substance: CLONIDINE
  6. women^s daily vitamin [Concomitant]
  7. BIOTIN [Concomitant]
     Active Substance: BIOTIN
  8. cranberry supplement [Concomitant]
  9. probiotic capsule [Concomitant]

REACTIONS (7)
  - Asthenia [None]
  - Fatigue [None]
  - Brain fog [None]
  - Abdominal distension [None]
  - Asthenia [None]
  - Constipation [None]
  - Gastrointestinal hypomotility [None]

NARRATIVE: CASE EVENT DATE: 20250110
